FAERS Safety Report 8406594-3 (Version None)
Quarter: 2012Q2

REPORT INFORMATION
  Report Type: 
  Country: None (occurrence: None)
  Receive Date: 20120604
  Receipt Date: 20120521
  Transmission Date: 20120825
  Serious: Yes (Hospitalization)
  Sender: FDA-Public Use
  Company Number: FR-JNJFOC-20120406280

PATIENT
  Sex: Male
  Weight: 31.8 kg

DRUGS (3)
  1. HUMIRA [Concomitant]
     Dates: start: 20110901
  2. REMICADE [Suspect]
     Indication: CROHN'S DISEASE
     Route: 042
     Dates: start: 20060330
  3. HUMIRA [Concomitant]
     Indication: PRODUCT USED FOR UNKNOWN INDICATION
     Dates: start: 20100225, end: 20110210

REACTIONS (1)
  - CROHN'S DISEASE [None]
